FAERS Safety Report 14616837 (Version 2)
Quarter: 2020Q3

REPORT INFORMATION
  Report Type: Spontaneous
  Country: NL (occurrence: NL)
  Receive Date: 20180309
  Receipt Date: 20200730
  Transmission Date: 20201102
  Serious: Yes (Other)
  Sender: FDA-Public Use
  Company Number: NL-UCBSA-2018008759

PATIENT
  Age: 34 Year
  Sex: Male
  Weight: 75 kg

DRUGS (14)
  1. KETOCONAZOL [Concomitant]
     Active Substance: KETOCONAZOLE
     Indication: FUNGAL INFECTION
     Dosage: IF NEEDED ONCE A WEEK, 2 DOSES OF 0.05G OF 20MG/G (=1MG)
     Route: 003
  2. DIAZEPAM. [Concomitant]
     Active Substance: DIAZEPAM
     Indication: PRODUCT USED FOR UNKNOWN INDICATION
     Dosage: AS SOON AS POSSIBLE IN CASE OF SEIZURE
  3. METRONIDAZOL [Concomitant]
     Active Substance: METRONIDAZOLE
     Indication: ROSACEA
     Dosage: 1 DAILY DOSE OF 0.1G OF 10MG/G (=1MG) FOR FACIAL ROSACEA
     Route: 003
  4. DICLOFENAC [Concomitant]
     Active Substance: DICLOFENAC
     Indication: PRODUCT USED FOR UNKNOWN INDICATION
     Dosage: IF NECESSARY 4 DAILY DOSES OF 3 GRAMS OF 11.6MG / G (= 34.8MG) IN CASE OF A WARM KNEE FOR 1 WEEK
     Route: 003
  5. LORAZEPAM. [Concomitant]
     Active Substance: LORAZEPAM
     Indication: PRODUCT USED FOR UNKNOWN INDICATION
     Dosage: IF NECESSARY, IN CASE OF 1 CLUSTER OF EPILEPTIC SEIZURES: 1 TABLET AFTER 2ND ATTACK. MAX. 2 TABLETS
     Route: 048
  6. VITAMINE B COMPLEX [Concomitant]
     Active Substance: CYANOCOBALAMIN\PYRIDOXINE HYDROCHLORIDE\RIBOFLAVIN\SODIUM PANTOTHENATE\THIAMINE HYDROCHLORIDE\VITAMIN B COMPLEX
     Indication: PRODUCT USED FOR UNKNOWN INDICATION
     Dosage: UNK
     Route: 048
  7. VIGABATRIN. [Concomitant]
     Active Substance: VIGABATRIN
     Indication: PRODUCT USED FOR UNKNOWN INDICATION
     Dosage: TWICE DAILY 0.5 TABLET VAN 500MG (=250MG)
     Route: 048
  8. MIDAZOLAM. [Concomitant]
     Active Substance: MIDAZOLAM
     Indication: PRODUCT USED FOR UNKNOWN INDICATION
     Dosage: IF NEEDED ACCORDING PROTOCOL
  9. OMEPRAZOL [Concomitant]
     Active Substance: OMEPRAZOLE
     Dosage: 1 TABL (17 U)
     Route: 048
  10. VIMPAT [Suspect]
     Active Substance: LACOSAMIDE
     Indication: EPILEPSY
     Dosage: TOTAL OF 250MG PER DAY (100 MG TWICE DAILY AND 50 MG ONCE DAILY)
     Route: 048
     Dates: start: 20170103
  11. OMEPRAZOL [Concomitant]
     Active Substance: OMEPRAZOLE
     Indication: PRODUCT USED FOR UNKNOWN INDICATION
     Dosage: IRREGULAR SCHEDULE: 0.5 TABLET (EVERY 8H)
     Route: 048
  12. LEVOCETIRIZINE [Concomitant]
     Active Substance: LEVOCETIRIZINE
     Indication: PRODUCT USED FOR UNKNOWN INDICATION
     Dosage: 1 DAILY DOSE OF 1 TABLET OF 5MG
     Route: 048
     Dates: start: 20150101
  13. COLECALCIFEROL [Concomitant]
     Active Substance: CHOLECALCIFEROL
     Indication: PRODUCT USED FOR UNKNOWN INDICATION
     Dosage: 1X PER WEEK 1 TABLET OF 5600 IU
  14. PARACETAMOL [Concomitant]
     Active Substance: ACETAMINOPHEN
     Indication: PRODUCT USED FOR UNKNOWN INDICATION
     Dosage: 3 DAILY DOSES OF 1000MG

REACTIONS (2)
  - Off label use [Unknown]
  - Gastritis [Unknown]

NARRATIVE: CASE EVENT DATE: 20170103
